FAERS Safety Report 17515933 (Version 2)
Quarter: 2020Q1

REPORT INFORMATION
  Report Type: Spontaneous
  Country: BE (occurrence: BE)
  Receive Date: 20200309
  Receipt Date: 20200323
  Transmission Date: 20200409
  Serious: Yes (Hospitalization, Other)
  Sender: FDA-Public Use
  Company Number: BE-PFIZER INC-2020094735

PATIENT
  Age: 50 Year
  Sex: Male
  Weight: 106 kg

DRUGS (3)
  1. ZALDIAR [Concomitant]
     Active Substance: ACETAMINOPHEN\TRAMADOL HYDROCHLORIDE
     Dosage: 3 DF, 3X/DAY
  2. BRUFEN [Concomitant]
     Active Substance: IBUPROFEN
     Dosage: 600 MG, 3X/DAY
  3. MEDROL [Suspect]
     Active Substance: METHYLPREDNISOLONE
     Indication: SCIATICA
     Dosage: 1 DF, 1X/DAY ( 1 DF = 32 MG)
     Route: 048
     Dates: start: 20191223, end: 20191224

REACTIONS (3)
  - Product use in unapproved indication [Unknown]
  - Hyperglycaemic unconsciousness [Recovered/Resolved]
  - Off label use [Unknown]

NARRATIVE: CASE EVENT DATE: 20191223
